FAERS Safety Report 23906844 (Version 1)
Quarter: 2024Q2

REPORT INFORMATION
  Report Type: Spontaneous
  Country: FR (occurrence: FR)
  Receive Date: 20240528
  Receipt Date: 20240528
  Transmission Date: 20240715
  Serious: Yes (Hospitalization, Other)
  Sender: FDA-Public Use
  Company Number: FR-CELLTRION INC.-2024FR012070

PATIENT

DRUGS (4)
  1. RITUXIMAB [Suspect]
     Active Substance: RITUXIMAB
     Indication: Marginal zone lymphoma
     Dosage: UNK
     Route: 042
     Dates: start: 20220414, end: 20220414
  2. BACTRIM [Suspect]
     Active Substance: SULFAMETHOXAZOLE\TRIMETHOPRIM
     Indication: Antibiotic prophylaxis
     Dosage: 3 DF, 1/WEEK
     Route: 048
     Dates: start: 20220414, end: 20220425
  3. VALACYCLOVIR HYDROCHLORIDE [Suspect]
     Active Substance: VALACYCLOVIR HYDROCHLORIDE
     Indication: Antibiotic prophylaxis
     Dosage: 2 DF, QD
     Route: 048
     Dates: start: 20220414, end: 20220425
  4. BENDAMUSTINE [Suspect]
     Active Substance: BENDAMUSTINE
     Indication: Marginal zone lymphoma
     Dosage: UNK
     Route: 042
     Dates: start: 20220414, end: 20220414

REACTIONS (5)
  - Cholestasis [Not Recovered/Not Resolved]
  - Hepatic cytolysis [Not Recovered/Not Resolved]
  - Eosinophilia [Not Recovered/Not Resolved]
  - Rash [Not Recovered/Not Resolved]
  - Intentional product use issue [Unknown]

NARRATIVE: CASE EVENT DATE: 20220415
